FAERS Safety Report 24880671 (Version 6)
Quarter: 2025Q4

REPORT INFORMATION
  Report Type: Report from Study
  Country: US (occurrence: US)
  Receive Date: 20250123
  Receipt Date: 20251225
  Transmission Date: 20260117
  Serious: Yes (Hospitalization, Other)
  Sender: ABBVIE
  Company Number: US-ABBVIE-6092240

PATIENT
  Age: 59 Year
  Sex: Male

DRUGS (2)
  1. HUMIRA [Suspect]
     Active Substance: ADALIMUMAB
     Indication: Rheumatoid arthritis
     Dosage: FORM STRENGTH: 40 MILLIGRAM
     Route: 058
  2. HUMIRA [Suspect]
     Active Substance: ADALIMUMAB
     Indication: Sjogren^s syndrome
     Dosage: CITRATE FREE?SOLUTION FOR INJECTION IN PRE-FILLED PEN?FORM STRENGTH: 40 MILLIGRAM
     Route: 058
     Dates: start: 20190801, end: 20250422

REACTIONS (20)
  - Renal cyst [Unknown]
  - Therapeutic product effect decreased [Not Recovered/Not Resolved]
  - Cerebral haemorrhage [Recovering/Resolving]
  - Musculoskeletal disorder [Unknown]
  - Road traffic accident [Recovering/Resolving]
  - Musculoskeletal stiffness [Unknown]
  - Peripheral swelling [Not Recovered/Not Resolved]
  - Malaise [Unknown]
  - Joint swelling [Unknown]
  - Diarrhoea [Unknown]
  - Brain operation [Unknown]
  - Urinary tract obstruction [Unknown]
  - Internal haemorrhage [Unknown]
  - Pain [Not Recovered/Not Resolved]
  - Pain in extremity [Not Recovered/Not Resolved]
  - Multiple allergies [Unknown]
  - Arthralgia [Unknown]
  - Pain in extremity [Unknown]
  - Joint swelling [Unknown]
  - Peripheral swelling [Recovered/Resolved]

NARRATIVE: CASE EVENT DATE: 20190101
